FAERS Safety Report 7586965-8 (Version None)
Quarter: 2011Q3

REPORT INFORMATION
  Report Type: 
  Country: None (occurrence: None)
  Receive Date: 20110701
  Receipt Date: 20110628
  Transmission Date: 20111222
  Serious: Yes (Hospitalization)
  Sender: FDA-Public Use
  Company Number: FR-AMGEN-FRASP2011032731

PATIENT
  Age: 59 Year
  Sex: Female

DRUGS (4)
  1. TAXOL [Concomitant]
     Dosage: UNK
     Route: 042
     Dates: start: 20110105
  2. NEULASTA [Suspect]
     Indication: CHEMOTHERAPY
     Dosage: UNK
     Route: 058
     Dates: start: 20110128, end: 20110128
  3. INEXIUM                            /01479303/ [Concomitant]
     Dosage: UNK
     Route: 048
     Dates: end: 20110224
  4. CARBOPLATIN [Suspect]
     Dosage: UNK
     Route: 042
     Dates: start: 20110105

REACTIONS (1)
  - THROMBOCYTOPENIA [None]
